FAERS Safety Report 5514516-8 (Version None)
Quarter: 2007Q4

REPORT INFORMATION
  Report Type: 
  Country: None (occurrence: None)
  Receive Date: 20071113
  Receipt Date: 20071108
  Transmission Date: 20080405
  Serious: Yes (Other)
  Sender: FDA-Public Use
  Company Number: US-BRISTOL-MYERS SQUIBB COMPANY-13976238

PATIENT
  Age: 75 Year
  Sex: Male
  Weight: 67 kg

DRUGS (7)
  1. COUMADIN [Suspect]
  2. MEGESTROL ACETATE [Interacting]
     Indication: DECREASED APPETITE
     Dosage: ORAL SUSPENSION
     Route: 048
     Dates: start: 20070911
  3. ZOCOR [Concomitant]
  4. NEURONTIN [Concomitant]
  5. VICODIN ES [Concomitant]
  6. REMERON [Concomitant]
  7. MIRALAX [Concomitant]

REACTIONS (2)
  - DRUG INTERACTION [None]
  - INTERNATIONAL NORMALISED RATIO INCREASED [None]
